FAERS Safety Report 19702129 (Version 1)
Quarter: 2021Q3

REPORT INFORMATION
  Report Type: Report from Study
  Country: US (occurrence: US)
  Receive Date: 20210813
  Receipt Date: 20210813
  Transmission Date: 20211014
  Serious: Yes (Hospitalization)
  Sender: FDA-Public Use
  Company Number: US-REGENERON PHARMACEUTICALS, INC.-2021-75508

PATIENT

DRUGS (2)
  1. REGN3767 [Suspect]
     Active Substance: FIANLIMAB
     Indication: MALIGNANT MELANOMA
     Dosage: 1600 MG, Q3W
     Route: 042
     Dates: start: 20210319, end: 20210429
  2. CEMIPLIMAB [Suspect]
     Active Substance: CEMIPLIMAB
     Indication: MALIGNANT MELANOMA
     Dosage: 350 MG, Q3W
     Route: 042
     Dates: start: 20210319, end: 20210429

REACTIONS (1)
  - Adrenal insufficiency [Not Recovered/Not Resolved]

NARRATIVE: CASE EVENT DATE: 20210722
